FAERS Safety Report 17414120 (Version 7)
Quarter: 2020Q2

REPORT INFORMATION
  Report Type: Spontaneous
  Country: US (occurrence: US)
  Receive Date: 20200213
  Receipt Date: 20200402
  Transmission Date: 20200713
  Serious: Yes (Other)
  Sender: FDA-Public Use
  Company Number: US-PFIZER INC-2020061179

PATIENT
  Age: 76 Year
  Sex: Female
  Weight: 59 kg

DRUGS (4)
  1. SYNTHROID [Concomitant]
     Active Substance: LEVOTHYROXINE SODIUM
     Dosage: 25 UG, UNK
  2. VENLAFAXINE [Concomitant]
     Active Substance: VENLAFAXINE HYDROCHLORIDE
     Dosage: 75 MG, UNK
  3. ESTRING [Suspect]
     Active Substance: ESTRADIOL
     Indication: ATROPHIC VULVOVAGINITIS
     Dosage: UNK
     Route: 067
     Dates: start: 20200109, end: 20200201
  4. ENBREL [Concomitant]
     Active Substance: ETANERCEPT
     Dosage: 50 MG/ML, UNK

REACTIONS (8)
  - Urinary tract infection [Recovered/Resolved]
  - Pain [Unknown]
  - Muscle spasms [Unknown]
  - Rash erythematous [Unknown]
  - Discomfort [Unknown]
  - Kidney infection [Recovered/Resolved]
  - Fungal infection [Not Recovered/Not Resolved]
  - Vaginal haemorrhage [Recovered/Resolved]
